FAERS Safety Report 5782381-X (Version None)
Quarter: 2008Q2

REPORT INFORMATION
  Report Type: 
  Country: None (occurrence: None)
  Receive Date: 20080623
  Receipt Date: 20071220
  Transmission Date: 20081010
  Serious: No
  Sender: FDA-Public Use
  Company Number: US-AMGEN-KDL257763

PATIENT
  Sex: Female

DRUGS (2)
  1. EPOGEN [Suspect]
     Indication: RENAL FAILURE CHRONIC
     Route: 042
     Dates: end: 20071124
  2. ARANESP [Suspect]
     Dates: start: 20060101

REACTIONS (3)
  - BLOOD PRESSURE INCREASED [None]
  - DRUG INTOLERANCE [None]
  - HEADACHE [None]
